FAERS Safety Report 17812786 (Version 2)
Quarter: 2020Q3

REPORT INFORMATION
  Report Type: Spontaneous
  Country: US (occurrence: US)
  Receive Date: 20200521
  Receipt Date: 20200702
  Transmission Date: 20201102
  Serious: Yes (Life-Threatening, Hospitalization, Other)
  Sender: FDA-Public Use
  Company Number: US-ASTRAZENECA-2020SE65825

PATIENT
  Age: 730 Month
  Sex: Male

DRUGS (1)
  1. SYMBICORT [Suspect]
     Active Substance: BUDESONIDE\FORMOTEROL FUMARATE DIHYDRATE
     Indication: DYSPNOEA
     Dosage: 80/4.5 MCG AS REQUIRED AS REQUIRED
     Route: 055

REACTIONS (10)
  - Cardiac failure congestive [Not Recovered/Not Resolved]
  - Diabetes mellitus [Not Recovered/Not Resolved]
  - Device dispensing error [Unknown]
  - Intentional device misuse [Not Recovered/Not Resolved]
  - Lung disorder [Unknown]
  - Device issue [Unknown]
  - Clinical death [Recovered/Resolved]
  - Pneumonia [Unknown]
  - Neuropathy peripheral [Not Recovered/Not Resolved]
  - Dyspnoea [Unknown]

NARRATIVE: CASE EVENT DATE: 202005
